FAERS Safety Report 8786639 (Version 1)
Quarter: 2012Q4

REPORT INFORMATION
  Report Type: 
  Country: US (occurrence: US)
  Receive Date: 20120914
  Receipt Date: 20120914
  Transmission Date: 20130627
  Serious: Yes (Death, Other)
  Sender: FDA-Public Use
  Company Number: PHHY2012US079808

PATIENT
  Age: 68 Year
  Sex: Male

DRUGS (1)
  1. LEVODOPA+CARBIDOPA [Suspect]
     Indication: PARKINSON^S DISEASE
     Dosage: 1 DF, QID

REACTIONS (9)
  - Death [Fatal]
  - Pneumonia aspiration [Unknown]
  - Cognitive disorder [Unknown]
  - Speech disorder developmental [Unknown]
  - Delusion of replacement [Unknown]
  - Hallucination, visual [Unknown]
  - Resting tremor [Unknown]
  - Masked facies [Unknown]
  - Memory impairment [Unknown]
